FAERS Safety Report 9393453 (Version 1)
Quarter: 2013Q3

REPORT INFORMATION
  Report Type: Spontaneous
  Country: US (occurrence: None)
  Receive Date: 20130709
  Receipt Date: 20130709
  Transmission Date: 20140515
  Serious: Yes (Life-Threatening, Hospitalization)
  Sender: FDA-Public Use
  Company Number: None

PATIENT
  Age: 57 Year
  Sex: Female
  Weight: 78.5 kg

DRUGS (4)
  1. LISINOPRIL [Suspect]
     Indication: HYPERTENSION
     Route: 048
     Dates: start: 20080828, end: 20130703
  2. LISINOPRIL [Suspect]
     Indication: CARDIAC FAILURE CONGESTIVE
     Route: 048
     Dates: start: 20080828, end: 20130703
  3. LAMOTRIGINE [Suspect]
     Route: 048
     Dates: start: 20130612, end: 20130703
  4. LAMOTRIGINE [Suspect]
     Route: 048
     Dates: start: 20130612, end: 20130703

REACTIONS (1)
  - Angioedema [None]
